FAERS Safety Report 6099093-8 (Version None)
Quarter: 2009Q1

REPORT INFORMATION
  Report Type: 
  Country: None (occurrence: None)
  Receive Date: 20090302
  Receipt Date: 20090225
  Transmission Date: 20090719
  Serious: No
  Sender: FDA-Public Use
  Company Number: US-B.I. PHARMACEUTICALS,INC./RIDGEFIELD-2009-BP-01366BP

PATIENT
  Sex: Female

DRUGS (15)
  1. SPIRIVA [Suspect]
     Indication: CHRONIC OBSTRUCTIVE PULMONARY DISEASE
     Dosage: 18MCG
     Route: 055
     Dates: start: 20050101
  2. PROAIR HFA [Concomitant]
     Indication: HYPERSENSITIVITY
  3. ACIDOPHILUS [Concomitant]
     Indication: ABDOMINAL DISCOMFORT
  4. NASACORT [Concomitant]
     Indication: HYPERSENSITIVITY
  5. BACLOFEN [Concomitant]
     Indication: TARDIVE DYSKINESIA
  6. KLONOPIN [Concomitant]
     Indication: TARDIVE DYSKINESIA
  7. ONDANSETRON [Concomitant]
     Indication: ABDOMINAL DISCOMFORT
  8. SINGULAIR [Concomitant]
     Indication: HYPERSENSITIVITY
  9. PANTOPRAZOLE [Concomitant]
     Indication: ABDOMINAL DISCOMFORT
  10. ACYCLOVIR [Concomitant]
     Indication: PROPHYLAXIS
     Dosage: 400MG
  11. LITHIUM [Concomitant]
     Indication: BIPOLAR DISORDER
  12. FOLIC ACID [Concomitant]
     Indication: BLOOD FOLATE DECREASED
  13. VITAMIN E [Concomitant]
     Indication: TARDIVE DYSKINESIA
  14. VITAMIN B6 [Concomitant]
  15. VITAMIN B-12 [Concomitant]

REACTIONS (7)
  - EATING DISORDER [None]
  - FATIGUE [None]
  - HYPERSOMNIA [None]
  - INFLUENZA [None]
  - OROPHARYNGEAL PAIN [None]
  - PYREXIA [None]
  - VITAMIN D DECREASED [None]
